FAERS Safety Report 22142410 (Version 1)
Quarter: 2023Q1

REPORT INFORMATION
  Report Type: Spontaneous
  Country: US (occurrence: US)
  Receive Date: 20230327
  Receipt Date: 20230327
  Transmission Date: 20230418
  Serious: No
  Sender: FDA-Public Use
  Company Number: US-UPSHER-SMITH LABORATORIES, LLC-2022USL00475

PATIENT
  Age: 70 Year
  Sex: Female
  Weight: 58.957 kg

DRUGS (6)
  1. PREVALITE [Suspect]
     Active Substance: CHOLESTYRAMINE
     Indication: Diarrhoea
     Dosage: HALF A PACKET
     Dates: start: 20220705, end: 20220705
  2. PREVALITE [Suspect]
     Active Substance: CHOLESTYRAMINE
     Dosage: TOOK ADDITIONAL PREVALITE
     Dates: start: 20220706, end: 20220706
  3. PREVALITE [Suspect]
     Active Substance: CHOLESTYRAMINE
     Dosage: UNK, 1X/DAY
     Dates: start: 20220707
  4. VITAMINS [Concomitant]
     Active Substance: VITAMINS
  5. GLUCOSAMINE [Concomitant]
     Active Substance: GLUCOSAMINE
  6. OCTREOTIDE [Concomitant]
     Active Substance: OCTREOTIDE
     Dosage: 20 MG EVERY 28 DAYS

REACTIONS (2)
  - Diarrhoea [Recovered/Resolved]
  - Extra dose administered [Unknown]

NARRATIVE: CASE EVENT DATE: 20220706
